FAERS Safety Report 16198714 (Version 2)
Quarter: 2019Q2

REPORT INFORMATION
  Report Type: Spontaneous
  Country: IT (occurrence: IT)
  Receive Date: 20190415
  Receipt Date: 20190417
  Transmission Date: 20190711
  Serious: Yes (Hospitalization)
  Sender: FDA-Public Use
  Company Number: IT-JNJFOC-20190411589

PATIENT
  Age: 39 Year
  Sex: Male

DRUGS (3)
  1. IBUPROFEN LYSINE. [Suspect]
     Active Substance: IBUPROFEN LYSINE
     Indication: BACK PAIN
     Dosage: AS REQUIRED
     Route: 048
     Dates: start: 20180817, end: 20180820
  2. AULIN [Suspect]
     Active Substance: NIMESULIDE
     Indication: BACK PAIN
     Dosage: AS REQUIRED
     Route: 048
     Dates: start: 20180817, end: 20180820
  3. TRAMADOL HYDROCHLORIDE. [Suspect]
     Active Substance: TRAMADOL HYDROCHLORIDE
     Indication: BACK PAIN
     Dosage: AS REQUIRED
     Route: 065
     Dates: start: 20180817, end: 20180820

REACTIONS (2)
  - Hepatitis acute [Recovering/Resolving]
  - Pancreatitis acute [Recovering/Resolving]

NARRATIVE: CASE EVENT DATE: 20180821
